FAERS Safety Report 5189345-8 (Version None)
Quarter: 2006Q4

REPORT INFORMATION
  Report Type: 
  Country: None (occurrence: None)
  Receive Date: 20061215
  Receipt Date: 20061204
  Transmission Date: 20070319
  Serious: Yes (Death, Other)
  Sender: FDA-Public Use
  Company Number: 2006093415

PATIENT
  Age: 60 Year
  Sex: Male

DRUGS (7)
  1. NEURONTIN [Suspect]
     Indication: PAIN
     Dosage: (300 MG)
     Dates: start: 20011002, end: 20040614
  2. ZOLPIDEM TARTRATE [Suspect]
  3. EFFEXOR XR [Suspect]
  4. GABITRIL [Suspect]
  5. ZONEGRAN [Suspect]
  6. RISPERDAL [Suspect]
  7. AMBIEN [Suspect]

REACTIONS (11)
  - ANXIETY [None]
  - COMPLETED SUICIDE [None]
  - CONDITION AGGRAVATED [None]
  - DRUG INEFFECTIVE [None]
  - DYSPNOEA [None]
  - INCORRECT DOSE ADMINISTERED [None]
  - INSOMNIA [None]
  - IRRITABILITY [None]
  - RESPIRATORY ARREST [None]
  - SUICIDAL IDEATION [None]
  - TREMOR [None]
